FAERS Safety Report 7729083-8 (Version None)
Quarter: 2011Q3

REPORT INFORMATION
  Report Type: 
  Country: None (occurrence: None)
  Receive Date: 20110831
  Receipt Date: 20110816
  Transmission Date: 20111222
  Serious: Yes (Hospitalization, Other)
  Sender: FDA-Public Use
  Company Number: JPI-P-016642

PATIENT
  Age: 52 Year
  Sex: Female
  Weight: 81.6475 kg

DRUGS (5)
  1. ESCITLAOPRAM OXALATE [Concomitant]
  2. XYREM [Suspect]
     Indication: FIBROMYALGIA
     Dosage: (UNKNOWN), ORAL, 12 GM (6 GM, 2 IN 1 D), ORAL
     Route: 048
     Dates: start: 20090101
  3. XYREM [Suspect]
     Indication: FIBROMYALGIA
     Dosage: (UNKNOWN), ORAL, 12 GM (6 GM, 2 IN 1 D), ORAL
     Route: 048
     Dates: end: 20110701
  4. AMPHETAMINE, DEXTROAMPHETAMINE MIXED SALTS [Concomitant]
  5. BUPROPION HCL [Concomitant]

REACTIONS (5)
  - BIPOLAR DISORDER [None]
  - NERVOUSNESS [None]
  - MUSCLE SPASMS [None]
  - PAIN IN EXTREMITY [None]
  - PULMONARY EMBOLISM [None]
